FAERS Safety Report 22835033 (Version 12)
Quarter: 2024Q3

REPORT INFORMATION
  Report Type: Report from Study
  Country: US (occurrence: US)
  Receive Date: 20230818
  Receipt Date: 20240712
  Transmission Date: 20241017
  Serious: Yes (Other)
  Sender: ACADIA PHARMACEUTICALS
  Company Number: US-ACADIA PHARMACEUTICALS INC.-ACA-2023-TRF-003110

PATIENT
  Age: 15 Year
  Sex: Male

DRUGS (25)
  1. DAYBUE [Suspect]
     Active Substance: TROFINETIDE
     Indication: Rett syndrome
     Dosage: 10 MILLILITER, BID
     Route: 048
     Dates: start: 20230712
  2. DAYBUE [Suspect]
     Active Substance: TROFINETIDE
     Dosage: 30 MILLILITER, BID
     Route: 048
     Dates: start: 20231016
  3. DAYBUE [Suspect]
     Active Substance: TROFINETIDE
     Dosage: 50 MILLILITER, BID
     Route: 048
  4. ESCITALOPRAM [Concomitant]
     Active Substance: ESCITALOPRAM OXALATE
     Indication: Anxiety disorder
     Dosage: 3MG/ 2MG
  5. ESCITALOPRAM [Concomitant]
     Active Substance: ESCITALOPRAM OXALATE
     Dosage: 5 MG/5 ML ORAL SOLUTION, GIVE 3ML BY ORAL ROUTE IN AM AND GIVE 2ML BY ORAL ROUTE IN PM
  6. LEXAPRO [Concomitant]
     Active Substance: ESCITALOPRAM OXALATE
     Dosage: 2.5MG IN MORNING AND AT NIGHT
  7. MIRTAZAPINE [Concomitant]
     Active Substance: MIRTAZAPINE
     Indication: Rett syndrome
     Dosage: 45 MILLIGRAM
  8. MIRTAZAPINE [Concomitant]
     Active Substance: MIRTAZAPINE
     Indication: Anxiety disorder
     Dosage: 7.5 MILLIGRAM, ONCE DAILY AT BEDTIME TO REPLACE 15 MG DOSE STARTING TONIGHT IF POSSIBLE
     Route: 048
  9. KATE FARMS STANDARD 1.4 [Concomitant]
     Dosage: 1.4CAL/ML
  10. TYLENOL [Concomitant]
     Active Substance: ACETAMINOPHEN
     Indication: Flatulence
     Dosage: 325 MILLIGRAM, GIVE 1 TABLET 025 MG) BY ORAL ROUTE EVERY 6 HOURS AS NEEDED
     Route: 048
  11. TYLENOL [Concomitant]
     Active Substance: ACETAMINOPHEN
     Indication: Pyrexia
  12. PUMICE STONE [Concomitant]
     Indication: Hyperkeratosis
     Dosage: USE PUMICE STONE DAILY TO CALLOUSED AREAS OF FEET DAILY
  13. PUMICE STONE [Concomitant]
     Indication: Hyperkeratosis
  14. ZEASORB AF [MICONAZOLE NITRATE] [Concomitant]
     Indication: Tinea pedis
     Dosage: APPLY BY TOPICAL ROUTE 2 TIMES PER DAY TO BOTH FEET
     Route: 061
  15. BACITRACIN [Concomitant]
     Active Substance: BACITRACIN
     Indication: Skin infection
     Dosage: 500 UNIT/GRAM, APPLY TO ABRASIONS 3X A DAY TOPICALLY UNTIL HEALED AS NEEDED
     Route: 061
  16. SODIUM CHLORIDE [Concomitant]
     Active Substance: SODIUM CHLORIDE
     Indication: Nasal congestion
     Dosage: 0.65 PERCENT, SPRAY 2 SPRAYS BY NASAL ROUTE IN BOTH NOSTRILS 4 TIMES PER DAY AS NEEDED
     Route: 045
  17. EMLA [Concomitant]
     Active Substance: LIDOCAINE\PRILOCAINE
     Dosage: 2.5 -2.5 PERCENT, APPLY TO SKIN PRIOR TO BOTOX INJECTIONS
     Route: 061
  18. ALPRAZOLAM [Concomitant]
     Active Substance: ALPRAZOLAM
     Indication: Anxiety disorder
     Dosage: 0.5MG, GIVE 1 TABLET (0.5 MG) BY ORAL ROUTE, 1 HOUR PRIOR TO BOTOX INJECTIONS
     Route: 048
  19. MIRALAX [Concomitant]
     Active Substance: POLYETHYLENE GLYCOL 3350
     Indication: Constipation
     Dosage: 17 GRAM, QD
  20. DULCOLAX (BISACODYL) [Concomitant]
     Active Substance: BISACODYL
     Indication: Constipation
     Dosage: 5 MILLIGRAM, BID FOR 4 DAYS
     Route: 048
  21. TRILEPTAL [Concomitant]
     Active Substance: OXCARBAZEPINE
     Indication: Seizure
     Dosage: 300 MILLIGRAM, QD
     Route: 048
  22. SIMETHICONE (DIMETHICONE) [Concomitant]
     Active Substance: DIMETHICONE
     Indication: Flatulence
     Dosage: 40MG/0.6ML TWICE A DAY
     Route: 048
  23. SIMETHICONE (DIMETHICONE) [Concomitant]
     Active Substance: DIMETHICONE
     Indication: Abdominal discomfort
  24. GUAR GUM [Concomitant]
     Active Substance: GUAR GUM
     Indication: Diarrhoea
     Dosage: 3 GRAM/3.5 GRAM, GIVE 1 PACKET BY ORAL ROUTE 2 TIMES PER DAY
     Route: 048
  25. OMEPRAZOLE [Concomitant]
     Active Substance: OMEPRAZOLE
     Indication: Gastrooesophageal reflux disease
     Dosage: 20 MILLIGRAM, QD
     Route: 048

REACTIONS (14)
  - Loss of consciousness [Recovered/Resolved]
  - Seizure [Recovered/Resolved]
  - Tremor [Recovered/Resolved]
  - Flatulence [Not Recovered/Not Resolved]
  - Abdominal pain upper [Not Recovered/Not Resolved]
  - Underdose [Not Recovered/Not Resolved]
  - Constipation [Not Recovered/Not Resolved]
  - Abdominal discomfort [Not Recovered/Not Resolved]
  - Thermal burn [Recovered/Resolved]
  - Diarrhoea [Not Recovered/Not Resolved]
  - Diarrhoea [Not Recovered/Not Resolved]
  - Diarrhoea [Not Recovered/Not Resolved]
  - Diarrhoea [Not Recovered/Not Resolved]
  - Diarrhoea [Not Recovered/Not Resolved]

NARRATIVE: CASE EVENT DATE: 20230701
